FAERS Safety Report 21488195 (Version 1)
Quarter: 2022Q4

REPORT INFORMATION
  Report Type: Spontaneous
  Country: US (occurrence: None)
  Receive Date: 20221020
  Receipt Date: 20221020
  Transmission Date: 20230112
  Serious: No
  Sender: FDA-Public Use
  Company Number: None

PATIENT
  Sex: Male

DRUGS (1)
  1. INFLECTRA [Suspect]
     Active Substance: INFLIXIMAB-DYYB
     Indication: Rheumatoid arthritis
     Dosage: 300 MG EVERY 8 WEEKS SUBCUTANEOUSLY?
     Route: 042
     Dates: start: 202205

REACTIONS (5)
  - Arthralgia [None]
  - Joint swelling [None]
  - Musculoskeletal stiffness [None]
  - Gait disturbance [None]
  - Drug ineffective [None]
